FAERS Safety Report 5203411-X (Version None)
Quarter: 2007Q1

REPORT INFORMATION
  Report Type: 
  Country: None (occurrence: None)
  Receive Date: 20070110
  Receipt Date: 20070108
  Transmission Date: 20070707
  Serious: Yes (Other)
  Sender: FDA-Public Use
  Company Number: 2007UW00346

PATIENT

DRUGS (3)
  1. SEROQUEL [Suspect]
     Route: 048
     Dates: start: 20060401
  2. CELEXA [Concomitant]
  3. LITHIUM CARBONATE [Concomitant]

REACTIONS (1)
  - BLOOD TRIGLYCERIDES INCREASED [None]
